FAERS Safety Report 23700307 (Version 2)
Quarter: 2024Q2

REPORT INFORMATION
  Report Type: Spontaneous
  Country: US (occurrence: US)
  Receive Date: 20240403
  Receipt Date: 20240614
  Transmission Date: 20240716
  Serious: No
  Sender: FDA-Public Use
  Company Number: US-002147023-NVSC2024US070517

PATIENT
  Sex: Female

DRUGS (1)
  1. KESIMPTA [Suspect]
     Active Substance: OFATUMUMAB
     Indication: Multiple sclerosis
     Dosage: UNK
     Route: 058

REACTIONS (6)
  - Tachycardia [Unknown]
  - Blood pressure systolic increased [Unknown]
  - Palpitations [Unknown]
  - Anxiety [Unknown]
  - Influenza like illness [Unknown]
  - Fatigue [Unknown]
